FAERS Safety Report 24622112 (Version 3)
Quarter: 2025Q4

REPORT INFORMATION
  Report Type: Report from Study
  Country: US (occurrence: None)
  Receive Date: 20241114
  Receipt Date: 20251024
  Transmission Date: 20260117
  Serious: Yes (Other)
  Sender: UCB
  Company Number: US-UCBSA-2023017060

PATIENT
  Age: 14 Year
  Weight: 82 kg

DRUGS (8)
  1. FENFLURAMINE [Suspect]
     Active Substance: FENFLURAMINE
     Indication: Product used for unknown indication
     Dosage: 0.5MG/KG/DAY (26MG/DAY)
  2. FENFLURAMINE [Suspect]
     Active Substance: FENFLURAMINE
     Dosage: 0.36MG/KG/DAY (26MG/DAY)
  3. FENFLURAMINE [Suspect]
     Active Substance: FENFLURAMINE
     Dosage: 0.4MG/KG/DAY (26MG/DAY)
  4. FENFLURAMINE [Suspect]
     Active Substance: FENFLURAMINE
     Dosage: 0.47MG/KG/DAY (26MG/DAY)
  5. FENFLURAMINE [Suspect]
     Active Substance: FENFLURAMINE
     Dosage: 0.50MG/KG/DAY (26MG/DAY)
  6. FENFLURAMINE [Suspect]
     Active Substance: FENFLURAMINE
     Dosage: 0.50MG/KG/DAY (26MG/DAY)
  7. FENFLURAMINE [Suspect]
     Active Substance: FENFLURAMINE
     Dosage: 0.31MG/KG/DAY (26MG/DAY)
  8. FENFLURAMINE [Suspect]
     Active Substance: FENFLURAMINE
     Dosage: 0.32MG/KG/DAY (26MG/DAY)

REACTIONS (2)
  - Cardiovascular disorder [Unknown]
  - Echocardiogram abnormal [Unknown]
